FAERS Safety Report 24393878 (Version 1)
Quarter: 2024Q4

REPORT INFORMATION
  Report Type: Spontaneous
  Country: TH (occurrence: TH)
  Receive Date: 20241003
  Receipt Date: 20241003
  Transmission Date: 20250115
  Serious: Yes (Other)
  Sender: NOVARTIS
  Company Number: TH-002147023-NVSC2024TH191482

PATIENT
  Age: 65 Year
  Sex: Male

DRUGS (3)
  1. PAZOPANIB [Suspect]
     Active Substance: PAZOPANIB
     Indication: Product used for unknown indication
     Dosage: UNK
     Route: 065
     Dates: start: 202205, end: 202211
  2. LENVATINIB [Concomitant]
     Active Substance: LENVATINIB
     Indication: Product used for unknown indication
     Dosage: 10 MG, QD
     Route: 065
     Dates: start: 20210906
  3. LENVATINIB [Concomitant]
     Active Substance: LENVATINIB
     Dosage: 14 MG, QD
     Route: 065
     Dates: start: 20210920

REACTIONS (3)
  - Disease progression [Unknown]
  - Neck mass [Unknown]
  - Nodule [Unknown]

NARRATIVE: CASE EVENT DATE: 20221101
